FAERS Safety Report 9571921 (Version 3)
Quarter: 2013Q4

REPORT INFORMATION
  Report Type: Spontaneous
  Country: JP (occurrence: None)
  Receive Date: 20130927
  Receipt Date: 20131112
  Transmission Date: 20140711
  Serious: Yes (Hospitalization)
  Sender: FDA-Public Use
  Company Number: SYM-2013-10986

PATIENT
  Age: 58 Year
  Sex: Female

DRUGS (15)
  1. 5 FU (FLUOROURACIL) [Suspect]
     Indication: COLORECTAL CANCER METASTATIC
     Route: 040
     Dates: start: 20130813, end: 20130813
  2. IRINOTECAN (IRINOTECAN) (SOLUTION FOR INFUSION) (IRINOTECAN) [Suspect]
     Indication: COLORECTAL CANCER METASTATIC
     Dosage: 150 MG/M2, EVERY  OTHER WEEK, INTRAVENOUS (NOT OTHERWISE SPECIFIED)
     Route: 042
     Dates: start: 20130813, end: 20130813
  3. LEUCOVORIN [Suspect]
     Indication: COLORECTAL CANCER METASTATIC
     Dosage: EVERY OTHER WEEK, INTRAVENOUS (NOT OTHERWISE SPECIFIED)
     Route: 042
     Dates: start: 20130813, end: 20130813
  4. AFLIBERCEPT (AFLIBERCEPT) (SOLUTION FOR INFUSION) (AFLIBERCEPT) [Suspect]
     Indication: COLORECTAL CANCER METASTATIC
     Dosage: 4 MG/KG, EVERY OTHER WEEK, INTRAVENOUS (NOT OTHERWISE SPECIFIED)
     Route: 042
     Dates: start: 20130813, end: 20130813
  5. ACTOS (PIOGLITAZONE HYDROCHLORIDE) (PIOGLITAZONE HYDROCHLORIDE) [Concomitant]
  6. JANUVIA (SITAGLIPTIN PHOSPHATE) (SITAGLIPTIN PHOSPHATE) [Concomitant]
  7. HYDROCHLOROTHIAZIDE/TELMISARTAN (PRITORPLUS) (HYDROCHLOROTHIAZIDE, TELMISARTAN) [Concomitant]
  8. AMLODIN (AMLODIPINE BESILATE) (AMLODIPINE BESILATE) [Concomitant]
  9. METGLUCO (METFORMIN HYDROCHLORIDE) (METFORMIN HYDROCHLORIDE) [Concomitant]
  10. NOVORAPID (INSULIN ASPART) (INSULIN ASPART) [Concomitant]
  11. MOBIC (MELOXICAM) (MELOXICAM) [Concomitant]
  12. ALLEGRA (FEXOFENADINE HYDROCHLORIDE) (FEXOFENADINE HYDROCHLORIDE)? [Concomitant]
  13. DECADRON (DEXAMETHASONE) (DEXAMETHASONE) [Concomitant]
  14. NOVAMIN (PROCHLORPERAZINE) (PROCHLORPERAZINE) [Concomitant]
  15. RINDERON-VG (VALISONE-G) (GENTAMICIN SULFATE, BETAMETHASONE VALERATE) [Concomitant]

REACTIONS (5)
  - Febrile neutropenia [None]
  - Malignant neoplasm progression [None]
  - Colorectal cancer metastatic [None]
  - Decreased appetite [None]
  - Malaise [None]
